FAERS Safety Report 9383488 (Version 2)
Quarter: 2013Q3

REPORT INFORMATION
  Report Type: Spontaneous
  Country: JP (occurrence: JP)
  Receive Date: 20130704
  Receipt Date: 20130716
  Transmission Date: 20140515
  Serious: Yes (Other)
  Sender: FDA-Public Use
  Company Number: JP-PFIZER INC-2013193069

PATIENT
  Age: 7 Decade
  Sex: Female

DRUGS (1)
  1. DIFLUCAN [Suspect]
     Route: 042

REACTIONS (1)
  - Pancytopenia [Unknown]
